FAERS Safety Report 9624577 (Version 1)
Quarter: 2013Q4

REPORT INFORMATION
  Report Type: Spontaneous
  Country: CH (occurrence: CH)
  Receive Date: 20131015
  Receipt Date: 20131015
  Transmission Date: 20140711
  Serious: Yes (Hospitalization)
  Sender: FDA-Public Use
  Company Number: CH-UCBSA-099786

PATIENT
  Age: 59 Year
  Sex: Female

DRUGS (22)
  1. VIMPAT [Suspect]
     Indication: EPILEPSY
     Dosage: ADMINISTERED PER PEG
     Dates: start: 201308, end: 20130913
  2. VIMPAT [Suspect]
     Indication: SIMPLE PARTIAL SEIZURES
     Dosage: ADMINISTERED PER PEG
     Dates: start: 201308, end: 20130913
  3. TOPAMAX [Suspect]
     Indication: EPILEPSY
     Dosage: ADMINISTERED VIA PEG
     Dates: start: 201308, end: 20130913
  4. TOPAMAX [Suspect]
     Indication: SIMPLE PARTIAL SEIZURES
     Dosage: ADMINISTERED VIA PEG
     Dates: start: 201308, end: 20130913
  5. ASPEGIC [Concomitant]
     Dosage: UNKNOWN DOSE
  6. PREDNISON [Concomitant]
     Dosage: UNKNOWN DOSE
  7. VALTREX [Concomitant]
     Dosage: UNKNOWN DOSE
  8. NOPIL [Concomitant]
     Dosage: UNKNOWN DOSE
  9. DIFLUCAN [Concomitant]
     Dosage: UNKNOWN DOSE
  10. CALCIUM [Concomitant]
     Dosage: UNKNOWN DOSE
  11. VITAMIN D3 [Concomitant]
     Dosage: UNKNOWN DOSE; DROPS
  12. KALIUM [Concomitant]
     Dosage: UNKNOWN DOSE
  13. DAFALGAN [Concomitant]
     Dosage: UNKNOWN DOSE
  14. MAGNESIUM [Concomitant]
     Dosage: UNKNOWN DOSE
  15. OXYNORM [Concomitant]
     Dosage: UNKNOWN DOSE
  16. NASIVINE [Concomitant]
     Dosage: UNKNOWN DOSE; SPRAY
  17. TRANSIPEG [Concomitant]
     Dosage: UNKNOWN DOSE
  18. CIPRALEX [Concomitant]
     Dosage: UNKNOWN DOSE
  19. REMERON [Concomitant]
     Dosage: UNKNOWN DOSE
  20. SPASMO URGENIN [Concomitant]
     Dosage: UNKNOWN DOSE
  21. SEROQUEL [Concomitant]
     Dosage: UNKNOWN DOSE
  22. ESOMEP [Concomitant]
     Dosage: UNKNOWN DOSE

REACTIONS (6)
  - Drug reaction with eosinophilia and systemic symptoms [Recovered/Resolved]
  - Rash maculo-papular [Recovered/Resolved]
  - Face oedema [Recovered/Resolved]
  - Lymphadenopathy [Unknown]
  - Hepatic enzyme increased [Recovering/Resolving]
  - Body temperature increased [Recovered/Resolved]
